FAERS Safety Report 4293536-8 (Version None)
Quarter: 2004Q1

REPORT INFORMATION
  Report Type: 
  Country: None (occurrence: None)
  Receive Date: 20040126
  Receipt Date: 20031007
  Transmission Date: 20041129
  Serious: No
  Sender: FDA-Public Use
  Company Number: USA030845649

PATIENT
  Age: 77 Year
  Sex: Female

DRUGS (7)
  1. FORTEO [Suspect]
     Indication: OSTEOPOROSIS
     Dates: start: 20030822
  2. SYNTHROID [Concomitant]
  3. PRILOSEC [Concomitant]
  4. ZANTAC [Concomitant]
  5. RESTORIL [Concomitant]
  6. PREDNISONE [Concomitant]
  7. ATENOLOL [Concomitant]

REACTIONS (5)
  - FEELING ABNORMAL [None]
  - MYALGIA [None]
  - PAIN EXACERBATED [None]
  - PAIN IN EXTREMITY [None]
  - PHARYNGOLARYNGEAL PAIN [None]
